FAERS Safety Report 8492927 (Version 5)
Quarter: 2013Q3

REPORT INFORMATION
  Report Type: Report from Study
  Country: GB (occurrence: GB)
  Receive Date: 20120404
  Receipt Date: 20130816
  Transmission Date: 20140515
  Serious: Yes (Other)
  Sender: FDA-Public Use
  Company Number: GB-JNJFOC-20120313029

PATIENT
  Age: 66 Year
  Sex: Male

DRUGS (2)
  1. REMICADE [Suspect]
     Indication: RHEUMATOID ARTHRITIS
     Route: 042
     Dates: start: 20070125
  2. METHOTREXATE [Concomitant]
     Indication: RHEUMATOID ARTHRITIS
     Dosage: INITIATED PRIOR TO INFLIXIMAB
     Route: 065

REACTIONS (3)
  - Carcinoma in situ of skin [Recovered/Resolved]
  - Squamous cell carcinoma [Unknown]
  - Basal cell carcinoma [Unknown]
